FAERS Safety Report 7378846-X (Version None)
Quarter: 2011Q1

REPORT INFORMATION
  Report Type: 
  Country: None (occurrence: None)
  Receive Date: 20110328
  Receipt Date: 20110315
  Transmission Date: 20110831
  Serious: Yes (Other)
  Sender: FDA-Public Use
  Company Number: PHHY2009JP33795

PATIENT
  Age: 62 Year
  Sex: Female

DRUGS (3)
  1. GLEEVEC [Suspect]
     Dosage: 200 MG, DAILY
     Route: 048
     Dates: start: 20090316, end: 20090626
  2. GLEEVEC [Suspect]
     Indication: CHRONIC MYELOID LEUKAEMIA
     Dosage: 400 MG PER DAY
     Route: 048
     Dates: start: 20040101
  3. GLEEVEC [Suspect]
     Dosage: UNK
     Route: 048
     Dates: start: 20090201, end: 20090601

REACTIONS (7)
  - FLUID RETENTION [None]
  - CHEST PAIN [None]
  - LUNG ADENOCARCINOMA [None]
  - NEOPLASM MALIGNANT [None]
  - PLEURAL EFFUSION [None]
  - COUGH [None]
  - RASH [None]
